FAERS Safety Report 22367722 (Version 2)
Quarter: 2023Q2

REPORT INFORMATION
  Report Type: Spontaneous
  Country: US (occurrence: US)
  Receive Date: 20230525
  Receipt Date: 20230605
  Transmission Date: 20230721
  Serious: No
  Sender: FDA-Public Use
  Company Number: US-LUPIN PHARMACEUTICALS INC.-2023-03861

PATIENT

DRUGS (3)
  1. ALBUTEROL SULFATE [Suspect]
     Active Substance: ALBUTEROL SULFATE
     Indication: Upper respiratory tract infection
     Dosage: UNK, PRN (2 PUFFS AS NEEDED)
  2. ALBUTEROL SULFATE [Suspect]
     Active Substance: ALBUTEROL SULFATE
     Indication: Dyspnoea
  3. LEVOTHYROXINE [Concomitant]
     Active Substance: LEVOTHYROXINE
     Indication: Thyroid disorder
     Dosage: UNK
     Route: 065

REACTIONS (6)
  - Product use in unapproved indication [Unknown]
  - Device occlusion [Unknown]
  - Drug dose omission by device [Unknown]
  - Device deposit issue [Unknown]
  - Dyspnoea [Unknown]
  - Device delivery system issue [Unknown]
